FAERS Safety Report 12501718 (Version 2)
Quarter: 2016Q3

REPORT INFORMATION
  Report Type: Spontaneous
  Country: US (occurrence: US)
  Receive Date: 20160627
  Receipt Date: 20160708
  Transmission Date: 20161109
  Serious: Yes (Other)
  Sender: FDA-Public Use
  Company Number: US-PFIZER INC-2016318976

PATIENT
  Sex: Female

DRUGS (1)
  1. METHIMAZOLE. [Suspect]
     Active Substance: METHIMAZOLE
     Dosage: 7.5 MG, DAILY

REACTIONS (6)
  - Goitre [Unknown]
  - Choking sensation [Unknown]
  - Dyspnoea [Unknown]
  - Drug intolerance [Unknown]
  - Localised oedema [Unknown]
  - Local swelling [Unknown]
